FAERS Safety Report 15959804 (Version 3)
Quarter: 2019Q2

REPORT INFORMATION
  Report Type: Spontaneous
  Country: ES (occurrence: ES)
  Receive Date: 20190214
  Receipt Date: 20190416
  Transmission Date: 20190711
  Serious: Yes (Other)
  Sender: FDA-Public Use
  Company Number: ES-AUROBINDO-AUR-APL-2019-007853

PATIENT

DRUGS (21)
  1. ROSUVASTATIN 20MG [Interacting]
     Active Substance: ROSUVASTATIN
     Dosage: 20 MILLIGRAM, ONCE A DAY, IN THE EVENING
     Route: 065
     Dates: start: 2017
  2. OMEPRAZOLE. [Suspect]
     Active Substance: OMEPRAZOLE
     Dosage: 20 MILLIGRAM
     Route: 065
     Dates: start: 2014
  3. AMLODIPINE [Concomitant]
     Active Substance: AMLODIPINE BESYLATE
     Indication: HYPERTENSION
     Dosage: 1 DOSAGE FORM, ONCE A DAY,1/0/0
     Route: 065
  4. BISOPROLOL [Concomitant]
     Active Substance: BISOPROLOL
     Indication: HYPERTENSION
     Dosage: 1 DOSAGE FORM, ONCE A DAY
     Route: 065
  5. ASA [Concomitant]
     Active Substance: ASPIRIN
     Indication: PROPHYLAXIS
     Dosage: 1 DOSAGE FORM, ONCE A DAY
     Route: 065
  6. OMEPRAZOL [Concomitant]
     Active Substance: OMEPRAZOLE
     Indication: PROPHYLAXIS
     Dosage: 1 DOSAGE FORM, ONCE A DAY
     Route: 065
  7. HYDROCHLOROTHIAZIDE. [Concomitant]
     Active Substance: HYDROCHLOROTHIAZIDE
     Indication: HYPERTENSION
     Dosage: 1 DOSAGE FORM, ONCE A DAY,1/0/0
     Route: 065
  8. ASA [Concomitant]
     Active Substance: ASPIRIN
     Indication: CARDIOVASCULAR EVENT PROPHYLAXIS
     Dosage: 100 MILLIGRAM, ONCE A DAY, IN THE MORNING
     Route: 065
     Dates: start: 2014
  9. ROSUVASTATIN 20MG [Suspect]
     Active Substance: ROSUVASTATIN
     Indication: HYPERCHOLESTEROLAEMIA
     Dosage: 1 DOSAGE FORM, ONCE A DAY
     Route: 065
  10. ROSUVASTATIN 20MG [Interacting]
     Active Substance: ROSUVASTATIN
     Dosage: 5 MILLIGRAM, ONCE A DAY, IN THE EVENING
     Route: 065
     Dates: start: 2017
  11. ALOPURINOL [Concomitant]
     Active Substance: ALLOPURINOL
     Indication: HYPERURICAEMIA
     Dosage: 1 DOSAGE FORM, ONCE A DAY,1/0/0
     Route: 065
  12. OMEPRAZOLE. [Suspect]
     Active Substance: OMEPRAZOLE
     Indication: PROPHYLAXIS
     Dosage: 1 DOSAGE FORM, ONCE A DAY,1/0/0
     Route: 065
  13. LORAZEPAM. [Concomitant]
     Active Substance: LORAZEPAM
     Indication: INSOMNIA
     Dosage: 1 DOSAGE FORM, ONCE A DAY,0/0/1
     Route: 065
  14. LORAZEPAM. [Concomitant]
     Active Substance: LORAZEPAM
     Dosage: 1 MILLIGRAM, ONCE A DAY, IN THE EVENING
     Route: 065
     Dates: start: 2016
  15. ALOPURINOL [Concomitant]
     Active Substance: ALLOPURINOL
     Dosage: 100 MILLIGRAM, ONCE A DAY, IN THE MORNING
     Route: 065
     Dates: start: 2016
  16. BISOPROLOL [Concomitant]
     Active Substance: BISOPROLOL
     Dosage: 2.5 MILLIGRAM, ONCE A DAY, IN THE MORNING
     Route: 065
  17. AAS [Concomitant]
     Active Substance: ASPIRIN
     Indication: PROPHYLAXIS
     Dosage: 1 DOSAGE FORM, ONCE A DAY
     Route: 065
  18. OLMESARTAN 40 MG [Interacting]
     Active Substance: OLMESARTAN
     Indication: HYPERTENSION
     Dosage: 1 DOSAGE FORM, ONCE A DAY,1/0/0
     Route: 065
  19. AMLODIPINE [Concomitant]
     Active Substance: AMLODIPINE BESYLATE
     Dosage: 5 MILLIGRAM, ONCE A DAY, IN THE MORNING
     Route: 065
  20. HYDROCHLOROTHIAZIDE. [Concomitant]
     Active Substance: HYDROCHLOROTHIAZIDE
     Dosage: 12 MILLIGRAM, ONCE A DAY, IN THE MORNING
     Route: 065
  21. OLMESARTAN 40 MG [Interacting]
     Active Substance: OLMESARTAN
     Dosage: 40 MILLIGRAM, ONCE A DAY, IN THE MORNING
     Route: 065

REACTIONS (3)
  - Inhibitory drug interaction [Unknown]
  - Tendon rupture [Recovered/Resolved]
  - Drug interaction [Recovered/Resolved]

NARRATIVE: CASE EVENT DATE: 2018
